FAERS Safety Report 11502232 (Version 4)
Quarter: 2016Q1

REPORT INFORMATION
  Report Type: Report from Study
  Country: CA (occurrence: CA)
  Receive Date: 20150914
  Receipt Date: 20160205
  Transmission Date: 20160525
  Serious: Yes (Death, Life-Threatening, Hospitalization)
  Sender: FDA-Public Use
  Company Number: PHHY2012CA021519

PATIENT
  Age: 54 Year
  Sex: Female

DRUGS (2)
  1. SANDOSTATIN LAR DEPOT [Suspect]
     Active Substance: OCTREOTIDE ACETATE
     Dosage: 30 MG, QMO (EVERY 4 WEEKS)
     Route: 030
     Dates: end: 20151127
  2. SANDOSTATIN LAR DEPOT [Suspect]
     Active Substance: OCTREOTIDE ACETATE
     Indication: METASTATIC CARCINOID TUMOUR
     Dosage: 20 MG, QMO (EVERY 4 WEEKS)
     Route: 030
     Dates: start: 20100703

REACTIONS (13)
  - Blood pressure increased [Unknown]
  - Weight decreased [Unknown]
  - Depression [Unknown]
  - Heart rate increased [Unknown]
  - Nasopharyngitis [Unknown]
  - Malaise [Unknown]
  - Muscle atrophy [Unknown]
  - Asthenia [Unknown]
  - Death [Fatal]
  - Fall [Unknown]
  - Productive cough [Unknown]
  - Feeling abnormal [Unknown]
  - Blood pressure diastolic decreased [Unknown]

NARRATIVE: CASE EVENT DATE: 20131230
